FAERS Safety Report 6705227-1 (Version None)
Quarter: 2010Q2

REPORT INFORMATION
  Report Type: 
  Country: None (occurrence: None)
  Receive Date: 20100430
  Receipt Date: 20090410
  Transmission Date: 20101027
  Serious: No
  Sender: FDA-Public Use
  Company Number: US-ASTRAZENECA-2009UW09095

PATIENT

DRUGS (1)
  1. NEXIUM [Suspect]
     Route: 042
     Dates: end: 20090410

REACTIONS (1)
  - INJECTION SITE EXTRAVASATION [None]
